FAERS Safety Report 20499752 (Version 4)
Quarter: 2022Q2

REPORT INFORMATION
  Report Type: Other
  Country: DK (occurrence: DK)
  Receive Date: 20220222
  Receipt Date: 20220404
  Transmission Date: 20220720
  Serious: Yes (Death, Hospitalization, Other)
  Sender: FDA-Public Use
  Company Number: DK-ASTELLAS-2022US006243

PATIENT
  Age: 72 Year
  Sex: Male

DRUGS (5)
  1. XTANDI [Suspect]
     Active Substance: ENZALUTAMIDE
     Indication: Prostate cancer metastatic
     Route: 048
     Dates: start: 2020, end: 2020
  2. XTANDI [Suspect]
     Active Substance: ENZALUTAMIDE
     Route: 048
     Dates: start: 2020, end: 2020
  3. DEGARELIX [Suspect]
     Active Substance: DEGARELIX
     Indication: Prostate cancer metastatic
     Route: 065
     Dates: start: 2020, end: 2020
  4. DEGARELIX [Suspect]
     Active Substance: DEGARELIX
     Dosage: 80 MG, UNKNOWN FREQ. (2 INJECTIONS OF 80 MG (80+80 MG) IN 8 WEEKS)
     Route: 065
     Dates: start: 2020, end: 2020
  5. ATENOLOL [Concomitant]
     Active Substance: ATENOLOL
     Indication: Long QT syndrome congenital
     Route: 065

REACTIONS (4)
  - Electrocardiogram QT prolonged [Fatal]
  - Cardiac arrest [Fatal]
  - Underdose [Unknown]
  - Off label use [Unknown]

NARRATIVE: CASE EVENT DATE: 20200101
